FAERS Safety Report 13010543 (Version 1)
Quarter: 2016Q4

REPORT INFORMATION
  Report Type: Spontaneous
  Country: US (occurrence: US)
  Receive Date: 20161208
  Receipt Date: 20161208
  Transmission Date: 20170207
  Serious: No
  Sender: FDA-Public Use
  Company Number: None

PATIENT
  Age: 76 Year
  Sex: Female
  Weight: 83.92 kg

DRUGS (9)
  1. HYDROCHLOROTHIAZIDE. [Concomitant]
     Active Substance: HYDROCHLOROTHIAZIDE
  2. VITAMIN D [Concomitant]
     Active Substance: CHOLECALCIFEROL
  3. LOW DOSE ASPIRIN [Concomitant]
     Active Substance: ASPIRIN
  4. MONTELUKAST GENERIC FOR SINGULAIR [Suspect]
     Active Substance: MONTELUKAST\MONTELUKAST SODIUM
     Dosage: EACH EVENING
     Route: 048
  5. MONTELUKAST GENERIC FOR SINGULAIR [Suspect]
     Active Substance: MONTELUKAST\MONTELUKAST SODIUM
     Indication: MULTIPLE ALLERGIES
     Dosage: 1 TABLET EA EVENING BY MOUTH
     Route: 048
     Dates: end: 20161116
  6. ACAI JUICE [Concomitant]
  7. HERBAL SHOT [Concomitant]
  8. COLESTID [Concomitant]
     Active Substance: COLESTIPOL HYDROCHLORIDE
  9. PROBIOTICS (ORTHOBIOTICS) [Concomitant]

REACTIONS (9)
  - Dyspepsia [None]
  - Respiratory disorder [None]
  - Toothache [None]
  - Skin discolouration [None]
  - Hyperhidrosis [None]
  - Ear pain [None]
  - Rash [None]
  - Pruritus [None]
  - Visual impairment [None]
